FAERS Safety Report 24873562 (Version 1)
Quarter: 2025Q1

REPORT INFORMATION
  Report Type: Spontaneous
  Country: FR (occurrence: FR)
  Receive Date: 20250122
  Receipt Date: 20250122
  Transmission Date: 20250409
  Serious: Yes (Hospitalization, Other)
  Sender: SANOFI AVENTIS
  Company Number: None

PATIENT
  Age: 59 Year
  Sex: Male

DRUGS (2)
  1. ENOXAPARIN SODIUM [Suspect]
     Active Substance: ENOXAPARIN SODIUM
     Indication: Blood disorder prophylaxis
     Route: 042
     Dates: start: 20241031
  2. CEFAZOLIN SODIUM [Suspect]
     Active Substance: CEFAZOLIN SODIUM
     Indication: Osteomyelitis
     Dosage: 7 G, QD
     Route: 042
     Dates: start: 20241031, end: 20241104

REACTIONS (2)
  - Hepatic cytolysis [Recovering/Resolving]
  - Shock haemorrhagic [Recovering/Resolving]

NARRATIVE: CASE EVENT DATE: 20241104
